FAERS Safety Report 17888364 (Version 3)
Quarter: 2020Q3

REPORT INFORMATION
  Report Type: Spontaneous
  Country: DE (occurrence: DE)
  Receive Date: 20200612
  Receipt Date: 20200925
  Transmission Date: 20201103
  Serious: Yes (Hospitalization)
  Sender: FDA-Public Use
  Company Number: DE-AMGEN-DEUSP2020091446

PATIENT
  Age: 16 Year
  Sex: Female
  Weight: 65 kg

DRUGS (3)
  1. DECLOFENAC [Concomitant]
     Active Substance: DICLOFENAC SODIUM
     Dosage: 50 MG (2 X)
     Dates: start: 2020
  2. ENBREL [Suspect]
     Active Substance: ETANERCEPT
     Indication: OSTEITIS
     Dosage: 50 MG
     Route: 058
     Dates: start: 20200103, end: 20200311
  3. NAPROXEN. [Concomitant]
     Active Substance: NAPROXEN
     Indication: OSTEITIS
     Dosage: UNK
     Dates: start: 201911, end: 2020

REACTIONS (3)
  - Product use in unapproved indication [Unknown]
  - Depression [Recovering/Resolving]
  - Off label use [Unknown]

NARRATIVE: CASE EVENT DATE: 20200103
